FAERS Safety Report 5398396-X (Version None)
Quarter: 2007Q3

REPORT INFORMATION
  Report Type: 
  Country: None (occurrence: None)
  Receive Date: 20070726
  Receipt Date: 20070419
  Transmission Date: 20080115
  Serious: No
  Sender: FDA-Public Use
  Company Number: US-AMGEN-KDL221046

PATIENT
  Sex: Male

DRUGS (3)
  1. PROCRIT [Suspect]
     Indication: PRE-EXISTING DISEASE
     Dates: start: 20070206
  2. REBETOL [Concomitant]
  3. PEG-INTRON [Concomitant]
     Route: 058

REACTIONS (2)
  - CONVULSION [None]
  - TONGUE INJURY [None]
